FAERS Safety Report 18518636 (Version 2)
Quarter: 2021Q3

REPORT INFORMATION
  Report Type: Spontaneous
  Country: US (occurrence: US)
  Receive Date: 20201118
  Receipt Date: 20210817
  Transmission Date: 20211014
  Serious: Yes (Other)
  Sender: FDA-Public Use
  Company Number: US-SAOL THERAPEUTICS-2020SAO00481

PATIENT
  Age: 71 Year
  Sex: Male

DRUGS (1)
  1. LIORESAL [Suspect]
     Active Substance: BACLOFEN
     Indication: MUSCLE SPASTICITY
     Dosage: 183.5 ?G, \DAY
     Route: 037

REACTIONS (16)
  - Motor neurone disease [Unknown]
  - Asthenia [Unknown]
  - Fall [Unknown]
  - Fatigue [Unknown]
  - Loss of personal independence in daily activities [Unknown]
  - Muscle rigidity [Unknown]
  - Limb injury [Unknown]
  - Dysarthria [Unknown]
  - Mobility decreased [Unknown]
  - Device infusion issue [Recovered/Resolved]
  - Underdose [Recovered/Resolved]
  - Stress [Unknown]
  - Skin laceration [Unknown]
  - Pruritus [Unknown]
  - Nail injury [Unknown]
  - Contusion [Unknown]

NARRATIVE: CASE EVENT DATE: 2020
